FAERS Safety Report 12081308 (Version 2)
Quarter: 2016Q1

REPORT INFORMATION
  Report Type: Spontaneous
  Country: IT (occurrence: IT)
  Receive Date: 20160216
  Receipt Date: 20160217
  Transmission Date: 20160526
  Serious: Yes (Life-Threatening)
  Sender: FDA-Public Use
  Company Number: IT-TEVA-397618ISR

PATIENT
  Age: 57 Year
  Sex: Male

DRUGS (1)
  1. LEVOCETIRIZINE [Suspect]
     Active Substance: LEVOCETIRIZINE
     Indication: ASTHMA
     Dosage: 5 MILLIGRAM DAILY;
     Route: 048
     Dates: start: 20130316, end: 20130316

REACTIONS (4)
  - Off label use [Recovered/Resolved]
  - Asthenia [Recovered/Resolved]
  - Road traffic accident [Recovered/Resolved]
  - Diplopia [Recovered/Resolved]

NARRATIVE: CASE EVENT DATE: 20130316
